FAERS Safety Report 20976008 (Version 1)
Quarter: 2022Q2

REPORT INFORMATION
  Report Type: Spontaneous
  Country: US (occurrence: US)
  Receive Date: 20220617
  Receipt Date: 20220617
  Transmission Date: 20220721
  Serious: No
  Sender: FDA-Public Use
  Company Number: US-NOVARTISTESTPH-NVSC2022US139366

PATIENT
  Sex: Female

DRUGS (1)
  1. COSENTYX [Suspect]
     Active Substance: SECUKINUMAB
     Indication: Product used for unknown indication
     Dosage: 150 MG (LOADING DOSE)
     Route: 065

REACTIONS (5)
  - Injection site bruising [Unknown]
  - Injection site mass [Unknown]
  - Urticaria [Unknown]
  - Accidental exposure to product [Unknown]
  - Product dose omission in error [Unknown]
